FAERS Safety Report 9023832 (Version 2)
Quarter: 2013Q2

REPORT INFORMATION
  Report Type: Spontaneous
  Country: CA (occurrence: CA)
  Receive Date: 20130121
  Receipt Date: 20130526
  Transmission Date: 20140414
  Serious: Yes (Hospitalization)
  Sender: FDA-Public Use
  Company Number: CA-US-EMD SERONO, INC.-7187746

PATIENT
  Age: 47 Year
  Sex: Female

DRUGS (5)
  1. REBIF [Suspect]
     Indication: RELAPSING-REMITTING MULTIPLE SCLEROSIS
     Route: 058
     Dates: start: 20001001, end: 20110118
  2. REBIF [Suspect]
     Route: 058
     Dates: start: 20110221, end: 20110613
  3. REBIF [Suspect]
     Route: 058
     Dates: start: 20110822, end: 201210
  4. REBIF [Suspect]
     Route: 058
     Dates: start: 201210, end: 20121210
  5. REBIF [Suspect]
     Route: 058
     Dates: start: 20130102

REACTIONS (4)
  - Pneumonia [Recovering/Resolving]
  - Coronary artery disease [Unknown]
  - White blood cell count increased [Recovering/Resolving]
  - Inappropriate schedule of drug administration [Unknown]
